FAERS Safety Report 10375440 (Version 1)
Quarter: 2014Q3

REPORT INFORMATION
  Report Type: Spontaneous
  Country: JP (occurrence: JP)
  Receive Date: 20140811
  Receipt Date: 20140811
  Transmission Date: 20150326
  Serious: Yes (Hospitalization)
  Sender: FDA-Public Use
  Company Number: JP-ASTELLAS-2014JP016849

PATIENT

DRUGS (1)
  1. GRACEPTOR [Suspect]
     Active Substance: TACROLIMUS
     Indication: PROPHYLAXIS AGAINST TRANSPLANT REJECTION
     Route: 048

REACTIONS (1)
  - Hospitalisation [Unknown]
